FAERS Safety Report 4627844-5 (Version None)
Quarter: 2005Q2

REPORT INFORMATION
  Report Type: 
  Country: None (occurrence: None)
  Receive Date: 20050401
  Receipt Date: 20050322
  Transmission Date: 20051028
  Serious: Yes (Hospitalization)
  Sender: FDA-Public Use
  Company Number: 2005SE00633

PATIENT
  Age: 84 Year
  Sex: Female
  Weight: 48 kg

DRUGS (9)
  1. BLOPRESS              (CANDESARTAN) [Suspect]
     Indication: HYPERTENSION
     Dosage: 12 MG BID PO
     Route: 048
     Dates: start: 20001230, end: 20040809
  2. TAKEPRON [Concomitant]
  3. SALIPEX [Concomitant]
  4. CARDENALIN [Concomitant]
  5. PHENLASE-S [Concomitant]
  6. GASMOTIN [Concomitant]
  7. STOGAR [Concomitant]
  8. ATELEC [Concomitant]
  9. ZYLORIC [Concomitant]

REACTIONS (6)
  - ANAEMIA [None]
  - CONTUSION [None]
  - FALL [None]
  - HEAD INJURY [None]
  - NEPHROTIC SYNDROME [None]
  - RENAL FAILURE [None]
